FAERS Safety Report 24217814 (Version 10)
Quarter: 2025Q4

REPORT INFORMATION
  Report Type: Spontaneous
  Country: CA (occurrence: CA)
  Receive Date: 20240816
  Receipt Date: 20251010
  Transmission Date: 20260119
  Serious: Yes (Death, Other)
  Sender: ROCHE
  Company Number: CA-ROCHE-10000056889

PATIENT
  Age: 58 Year
  Sex: Female

DRUGS (52)
  1. ACTEMRA [Suspect]
     Active Substance: TOCILIZUMAB
     Indication: Rheumatoid arthritis
     Route: 058
  2. ACTEMRA [Suspect]
     Active Substance: TOCILIZUMAB
     Route: 058
  3. ACTEMRA [Suspect]
     Active Substance: TOCILIZUMAB
     Route: 058
  4. ACTEMRA [Suspect]
     Active Substance: TOCILIZUMAB
     Route: 058
  5. ACTEMRA [Suspect]
     Active Substance: TOCILIZUMAB
     Route: 058
  6. ACTEMRA [Suspect]
     Active Substance: TOCILIZUMAB
     Route: 065
  7. ACTEMRA [Suspect]
     Active Substance: TOCILIZUMAB
     Route: 058
  8. ACTEMRA [Suspect]
     Active Substance: TOCILIZUMAB
     Route: 058
  9. ACTEMRA [Suspect]
     Active Substance: TOCILIZUMAB
     Route: 058
  10. ACTEMRA [Suspect]
     Active Substance: TOCILIZUMAB
     Route: 058
  11. ACTEMRA [Suspect]
     Active Substance: TOCILIZUMAB
     Route: 058
  12. ACTEMRA [Suspect]
     Active Substance: TOCILIZUMAB
     Route: 065
  13. ACTEMRA [Suspect]
     Active Substance: TOCILIZUMAB
     Route: 058
  14. ACTEMRA [Suspect]
     Active Substance: TOCILIZUMAB
     Route: 058
  15. ACTEMRA [Suspect]
     Active Substance: TOCILIZUMAB
     Route: 058
  16. ACTEMRA [Suspect]
     Active Substance: TOCILIZUMAB
     Route: 058
  17. ACTEMRA [Suspect]
     Active Substance: TOCILIZUMAB
     Route: 058
  18. ACTEMRA [Suspect]
     Active Substance: TOCILIZUMAB
     Route: 058
  19. ACTEMRA [Suspect]
     Active Substance: TOCILIZUMAB
     Route: 058
  20. ACTEMRA [Suspect]
     Active Substance: TOCILIZUMAB
     Route: 058
  21. ACTEMRA [Suspect]
     Active Substance: TOCILIZUMAB
     Route: 058
  22. ACTEMRA [Suspect]
     Active Substance: TOCILIZUMAB
     Route: 058
  23. ACTEMRA [Suspect]
     Active Substance: TOCILIZUMAB
     Route: 058
  24. ACTEMRA [Suspect]
     Active Substance: TOCILIZUMAB
     Route: 058
  25. ACTEMRA [Suspect]
     Active Substance: TOCILIZUMAB
     Route: 058
  26. ACTEMRA [Suspect]
     Active Substance: TOCILIZUMAB
     Route: 058
  27. ACTEMRA [Suspect]
     Active Substance: TOCILIZUMAB
     Route: 058
  28. ACTEMRA [Suspect]
     Active Substance: TOCILIZUMAB
     Route: 058
  29. ACTEMRA [Suspect]
     Active Substance: TOCILIZUMAB
     Route: 058
  30. ACTEMRA [Suspect]
     Active Substance: TOCILIZUMAB
     Route: 058
  31. ACTEMRA [Suspect]
     Active Substance: TOCILIZUMAB
     Route: 058
  32. ACTEMRA [Suspect]
     Active Substance: TOCILIZUMAB
     Route: 058
  33. RITUXIMAB [Suspect]
     Active Substance: RITUXIMAB
     Indication: Rheumatoid arthritis
     Route: 042
  34. RITUXIMAB [Suspect]
     Active Substance: RITUXIMAB
     Route: 042
  35. RITUXIMAB [Suspect]
     Active Substance: RITUXIMAB
     Route: 042
  36. RITUXIMAB [Suspect]
     Active Substance: RITUXIMAB
     Route: 042
  37. RITUXIMAB [Suspect]
     Active Substance: RITUXIMAB
     Route: 011
  38. RITUXIMAB [Suspect]
     Active Substance: RITUXIMAB
     Route: 042
  39. RITUXIMAB [Suspect]
     Active Substance: RITUXIMAB
     Route: 042
  40. TOCILIZUMAB [Suspect]
     Active Substance: TOCILIZUMAB
     Indication: Rheumatoid arthritis
     Route: 058
  41. TOCILIZUMAB [Suspect]
     Active Substance: TOCILIZUMAB
     Route: 058
  42. TOCILIZUMAB [Suspect]
     Active Substance: TOCILIZUMAB
     Route: 065
  43. TOCILIZUMAB [Suspect]
     Active Substance: TOCILIZUMAB
     Route: 058
  44. TOCILIZUMAB [Suspect]
     Active Substance: TOCILIZUMAB
     Route: 065
  45. ENBREL [Concomitant]
     Active Substance: ETANERCEPT
  46. LYRICA [Concomitant]
     Active Substance: PREGABALIN
     Indication: Pain
  47. LYRICA [Concomitant]
     Active Substance: PREGABALIN
     Indication: Herpes zoster
  48. XELJANZ [Concomitant]
     Active Substance: TOFACITINIB CITRATE
     Indication: Rheumatoid arthritis
  49. XELJANZ [Concomitant]
     Active Substance: TOFACITINIB CITRATE
     Indication: Herpes zoster
  50. DOLUTEGRAVIR [Concomitant]
     Active Substance: DOLUTEGRAVIR
  51. DOLUTEGRAVIR SODIUM [Concomitant]
     Active Substance: DOLUTEGRAVIR SODIUM
  52. SODIUM ASCORBATE [Concomitant]
     Active Substance: SODIUM ASCORBATE

REACTIONS (44)
  - Asthma [Fatal]
  - Back pain [Fatal]
  - Bursitis [Fatal]
  - Coeliac disease [Fatal]
  - Constipation [Fatal]
  - Contraindicated product administered [Fatal]
  - Decreased immune responsiveness [Fatal]
  - Drug hypersensitivity [Fatal]
  - Drug ineffective [Fatal]
  - Drug intolerance [Fatal]
  - Maternal exposure during pregnancy [Unknown]
  - Fatigue [Fatal]
  - Fluid retention [Fatal]
  - Food allergy [Fatal]
  - Headache [Fatal]
  - Hepatic enzyme increased [Fatal]
  - Hyperhidrosis [Fatal]
  - Hypertension [Fatal]
  - Immunodeficiency [Fatal]
  - Infection [Fatal]
  - Pyrexia [Fatal]
  - Infusion related reaction [Fatal]
  - Intentional product misuse [Fatal]
  - Joint swelling [Fatal]
  - Off label use [Fatal]
  - Overdose [Fatal]
  - Pain [Fatal]
  - Prescribed overdose [Fatal]
  - Product use issue [Fatal]
  - Psoriasis [Fatal]
  - Rash [Fatal]
  - Rash erythematous [Fatal]
  - Temperature regulation disorder [Fatal]
  - Thrombocytopenia [Fatal]
  - Treatment failure [Fatal]
  - Upper respiratory tract infection [Fatal]
  - Rheumatoid arthritis [Fatal]
  - Hyponatraemia [Fatal]
  - Nausea [Fatal]
  - Retching [Fatal]
  - Cardiac failure [Fatal]
  - Erythema [Fatal]
  - Leukopenia [Fatal]
  - Hypersensitivity [Fatal]
